FAERS Safety Report 12826283 (Version 1)
Quarter: 2016Q4

REPORT INFORMATION
  Report Type: Spontaneous
  Country: US (occurrence: US)
  Receive Date: 20161007
  Receipt Date: 20161007
  Transmission Date: 20170207
  Serious: No
  Sender: FDA-Public Use
  Company Number: US-WATSON-2016-02619

PATIENT
  Sex: Male

DRUGS (1)
  1. FENTANYL-100 (WATSON LABORATORIES) [Suspect]
     Active Substance: FENTANYL
     Indication: PRODUCT USED FOR UNKNOWN INDICATION
     Dosage: UNKNOWN
     Route: 062

REACTIONS (4)
  - Lacrimation increased [Not Recovered/Not Resolved]
  - Withdrawal syndrome [Not Recovered/Not Resolved]
  - Diplopia [Not Recovered/Not Resolved]
  - Asthenia [Not Recovered/Not Resolved]
